FAERS Safety Report 19479328 (Version 2)
Quarter: 2021Q3

REPORT INFORMATION
  Report Type: Spontaneous
  Country: JP (occurrence: JP)
  Receive Date: 20210630
  Receipt Date: 20210903
  Transmission Date: 20211014
  Serious: No
  Sender: FDA-Public Use
  Company Number: JP-ELI_LILLY_AND_COMPANY-JP202106010975

PATIENT
  Age: 53 Year
  Sex: Male
  Weight: 84.5 kg

DRUGS (12)
  1. GEMCITABINE HYDROCHLORIDE. [Suspect]
     Active Substance: GEMCITABINE HYDROCHLORIDE
     Indication: SQUAMOUS CELL CARCINOMA OF LUNG
     Dosage: 1250 MG/M2, OTHER
     Route: 041
     Dates: start: 20210421, end: 20210716
  2. BUP?4 [Concomitant]
     Active Substance: PROPIVERINE
     Dosage: UNK
     Route: 048
     Dates: start: 202012, end: 20210716
  3. MAGNESIUM OXIDE. [Concomitant]
     Active Substance: MAGNESIUM OXIDE
     Indication: CONSTIPATION
     Dosage: UNK
     Route: 048
     Dates: start: 202006, end: 20210716
  4. SILODOSIN OD [Concomitant]
     Indication: BENIGN PROSTATIC HYPERPLASIA
     Dosage: UNK
     Route: 048
     Dates: start: 202011, end: 20210716
  5. SILODOSIN OD [Concomitant]
     Indication: HYPERTONIC BLADDER
  6. NECITUMUMAB [Suspect]
     Active Substance: NECITUMUMAB
     Indication: SQUAMOUS CELL CARCINOMA OF LUNG
     Dosage: 800 MG, OTHER
     Route: 041
     Dates: start: 20210421, end: 20210716
  7. MAGNESIUM SULFATE. [Concomitant]
     Active Substance: MAGNESIUM SULFATE
     Dosage: UNK
     Dates: start: 20210421, end: 20210716
  8. RANDA [Suspect]
     Active Substance: CISPLATIN
     Indication: SQUAMOUS CELL CARCINOMA OF LUNG
     Dosage: 75 MG/M2, OTHER
     Route: 041
     Dates: start: 20210421, end: 20210716
  9. ROSUVASTATIN. [Concomitant]
     Active Substance: ROSUVASTATIN
     Indication: DYSLIPIDAEMIA
     Dosage: UNK
     Route: 048
     Dates: start: 202012, end: 20210716
  10. SILODOSIN OD [Concomitant]
     Indication: NEUROGENIC BLADDER
  11. CODEINE PHOSPHATE [Concomitant]
     Active Substance: CODEINE PHOSPHATE
     Indication: SQUAMOUS CELL CARCINOMA OF LUNG
     Dosage: UNK
     Route: 048
     Dates: start: 202006, end: 20210716
  12. L?CARBOCISTEINE [Concomitant]
     Active Substance: CARBOCYSTEINE
     Indication: SQUAMOUS CELL CARCINOMA OF LUNG
     Dosage: UNK
     Route: 048
     Dates: start: 202006, end: 20210716

REACTIONS (6)
  - Neutrophil count decreased [Recovered/Resolved]
  - Skin disorder [Recovering/Resolving]
  - Platelet count decreased [Recovered/Resolved]
  - Phlebitis [Recovering/Resolving]
  - Skin disorder [Recovering/Resolving]
  - Phlebitis [Not Recovered/Not Resolved]

NARRATIVE: CASE EVENT DATE: 20210428
